FAERS Safety Report 8718214 (Version 2)
Quarter: 2013Q4

REPORT INFORMATION
  Report Type: Spontaneous
  Country: FR (occurrence: FR)
  Receive Date: 20120810
  Receipt Date: 20131106
  Transmission Date: 20140711
  Serious: No
  Sender: FDA-Public Use
  Company Number: FR-009507513-1205FRA00012

PATIENT
  Age: 76 Year
  Sex: Male

DRUGS (1)
  1. TIMOLOL MALEATE [Suspect]
     Indication: GLAUCOMA
     Dosage: BID
     Route: 047
     Dates: start: 201204

REACTIONS (6)
  - Haematochezia [Recovered/Resolved]
  - Haemorrhoids [Recovering/Resolving]
  - Intentional overdose [Not Recovered/Not Resolved]
  - Haematochezia [Recovered/Resolved]
  - Conjunctival haemorrhage [Recovering/Resolving]
  - Dizziness [Recovering/Resolving]
